FAERS Safety Report 9209349 (Version 1)
Quarter: 2013Q2

REPORT INFORMATION
  Report Type: Spontaneous
  Country: US (occurrence: US)
  Receive Date: 20130404
  Receipt Date: 20130404
  Transmission Date: 20140414
  Serious: Yes (Hospitalization)
  Sender: FDA-Public Use
  Company Number: US-PFIZER INC-2013105244

PATIENT
  Age: 57 Year
  Sex: Male
  Weight: 90.7 kg

DRUGS (5)
  1. NORVASC [Suspect]
     Indication: BLOOD PRESSURE
     Dosage: 10 MG, DAILY
     Dates: start: 2012
  2. LIPITOR [Suspect]
     Indication: BLOOD CHOLESTEROL
     Dosage: 20 MG, DAILY
  3. ATENOLOL [Concomitant]
     Indication: BLOOD PRESSURE
     Dosage: 100 MG, DAILY
  4. ZOLOFT [Concomitant]
     Indication: DEPRESSION
     Dosage: 150 MG, DAILY
     Dates: start: 2012
  5. ZOLOFT [Concomitant]
     Indication: ANXIETY

REACTIONS (2)
  - Cardiac disorder [Unknown]
  - Expired drug administered [Unknown]
